FAERS Safety Report 8049742 (Version 3)
Quarter: 2018Q4

REPORT INFORMATION
  Report Type: Spontaneous
  Country: FR (occurrence: FR)
  Receive Date: 20110722
  Receipt Date: 20181008
  Transmission Date: 20190205
  Serious: Yes (Hospitalization, Other)
  Sender: FDA-Public Use
  Company Number: FR-PFIZER INC-2011161687

PATIENT
  Age: 60 Year
  Sex: Male

DRUGS (2)
  1. LORAZEPAM. [Concomitant]
     Active Substance: LORAZEPAM
     Indication: ANXIETY
     Dosage: 2.5 MG, DAILY
     Route: 048
  2. VFEND [Suspect]
     Active Substance: VORICONAZOLE
     Indication: ASPERGILLUS INFECTION
     Dosage: 400 MG, DAILY
     Route: 048
     Dates: start: 20110415, end: 20110614

REACTIONS (6)
  - General physical health deterioration [Recovering/Resolving]
  - Hypertension [Recovering/Resolving]
  - Neuropathy peripheral [Recovering/Resolving]
  - Pharyngeal hypoaesthesia [Recovering/Resolving]
  - Gait disturbance [Recovering/Resolving]
  - Laryngeal discomfort [Recovering/Resolving]

NARRATIVE: CASE EVENT DATE: 20110613
